FAERS Safety Report 8140290-5 (Version None)
Quarter: 2012Q1

REPORT INFORMATION
  Report Type: 
  Country: None (occurrence: None)
  Receive Date: 20120216
  Receipt Date: 20120214
  Transmission Date: 20120608
  Serious: No
  Sender: FDA-Public Use
  Company Number: US-PFIZER INC-2012040160

PATIENT
  Age: 52 Year
  Sex: Female

DRUGS (1)
  1. CHANTIX [Suspect]
     Dosage: UNK

REACTIONS (6)
  - MIGRAINE [None]
  - TOBACCO USER [None]
  - VOMITING [None]
  - HEADACHE [None]
  - DRUG INEFFECTIVE [None]
  - MALAISE [None]
